FAERS Safety Report 9336002 (Version 1)
Quarter: 2013Q2

REPORT INFORMATION
  Report Type: Report from Study
  Country: US (occurrence: US)
  Receive Date: 20130607
  Receipt Date: 20130607
  Transmission Date: 20140414
  Serious: Yes (Other)
  Sender: FDA-Public Use
  Company Number: US-ROCHE-1229705

PATIENT
  Sex: 0

DRUGS (3)
  1. BEVACIZUMAB [Suspect]
     Indication: BILE DUCT CANCER
     Dosage: DAY 1 AND DAY 15 OF EVERY 28 DAY CYCLE
     Route: 065
  2. GEMCITABINE [Suspect]
     Indication: BILE DUCT CANCER
     Dosage: DAY 1 AND DAY 15 OF EVERY 28 DAY CYCLE
     Route: 065
  3. OXALIPLATIN [Suspect]
     Indication: BILE DUCT CANCER
     Dosage: DAY 1 AND DAY 15 OF EVERY 28 DAY CYCLE
     Route: 065

REACTIONS (4)
  - Fatigue [Unknown]
  - Febrile neutropenia [Unknown]
  - Decreased appetite [Unknown]
  - Hepatic enzyme increased [Unknown]
